FAERS Safety Report 10223836 (Version 1)
Quarter: 2014Q2

REPORT INFORMATION
  Report Type: Spontaneous
  Country: GB (occurrence: None)
  Receive Date: 20140605
  Receipt Date: 20140605
  Transmission Date: 20141212
  Serious: Yes (Hospitalization, Other)
  Sender: FDA-Public Use
  Company Number: 2014000175

PATIENT
  Age: 86 Year
  Sex: Male

DRUGS (8)
  1. ACEON (PERINDOPRIL ERBUMINE) TABLET [Suspect]
     Indication: PRODUCT USED FOR UNKNOWN INDICATION
  2. DIGOXIN (DIGOXIN) [Concomitant]
  3. WARFARIN (WARFARIN) [Concomitant]
  4. FUROSEMIDE (FUROSEMIDE) [Concomitant]
  5. AMILORIDE (AMILORIDE) [Concomitant]
  6. GLICLAZIDE (GLICLAZIDE) [Concomitant]
  7. BECLOMETHASONE (BECLOMETASONE DIPROPIONATE) INHALER [Concomitant]
  8. SALBUTAMOL (SALBUTAMOL) INHALER [Concomitant]

REACTIONS (7)
  - Renal impairment [None]
  - Ventricular tachycardia [None]
  - Bundle branch block right [None]
  - Hypotension [None]
  - Atrial fibrillation [None]
  - Bundle branch block left [None]
  - QRS axis abnormal [None]
